FAERS Safety Report 13870165 (Version 2)
Quarter: 2017Q3

REPORT INFORMATION
  Report Type: Spontaneous
  Country: RU (occurrence: RU)
  Receive Date: 20170815
  Receipt Date: 20170914
  Transmission Date: 20171127
  Serious: Yes (Hospitalization)
  Sender: FDA-Public Use
  Company Number: RU-LANNETT COMPANY, INC.-RU-2017LAN000977

PATIENT

DRUGS (8)
  1. SULFACYL SODIUM SOLUTION [Concomitant]
     Indication: PRODUCT USED FOR UNKNOWN INDICATION
     Dosage: 20% 2 DROPS TID IN BOTH EYES
  2. TROPICAMIDE. [Suspect]
     Active Substance: TROPICAMIDE
     Indication: PROPHYLAXIS
     Dosage: 0.5%, 1 DROP BID
  3. DICLOFENAC SODIUM. [Concomitant]
     Active Substance: DICLOFENAC SODIUM
     Indication: PRODUCT USED FOR UNKNOWN INDICATION
     Dosage: 75 MG 3 ML, QD
  4. INDAPAMIDE. [Suspect]
     Active Substance: INDAPAMIDE
     Indication: HYPERTENSION
     Dosage: 2.5 MG, QD, IN THE MORNING
     Route: 048
  5. DEXAMETHASONE. [Concomitant]
     Active Substance: DEXAMETHASONE
     Indication: PRODUCT USED FOR UNKNOWN INDICATION
     Dosage: 2 DROPS, TID IN LEFT EYE
  6. TIMOLOL. [Suspect]
     Active Substance: TIMOLOL
     Indication: PRODUCT USED FOR UNKNOWN INDICATION
     Dosage: %0.5 SOLUTION, BID IN BOTH EYES
  7. ACETAZOLAMIDE. [Suspect]
     Active Substance: ACETAZOLAMIDE
     Indication: INTRAOCULAR PRESSURE INCREASED
     Dosage: 125 MG, BID
     Route: 065
  8. DIAZEPAM. [Concomitant]
     Active Substance: DIAZEPAM
     Indication: SEDATION
     Dosage: 2 ML, ONCE
     Route: 030

REACTIONS (5)
  - Hypotension [Unknown]
  - Loss of consciousness [Unknown]
  - Bradycardia [Unknown]
  - Drug interaction [Unknown]
  - Fall [Unknown]
